FAERS Safety Report 7352237-X (Version None)
Quarter: 2011Q1

REPORT INFORMATION
  Report Type: 
  Country: None (occurrence: None)
  Receive Date: 20110315
  Receipt Date: 20100917
  Transmission Date: 20110831
  Serious: Yes (Hospitalization)
  Sender: FDA-Public Use
  Company Number: US-BAYER-201021594NA

PATIENT
  Sex: Female
  Weight: 121.54 kg

DRUGS (10)
  1. YASMIN [Suspect]
     Indication: PAIN MANAGEMENT
  2. YASMIN [Suspect]
     Indication: MENSTRUAL CYCLE MANAGEMENT
     Dosage: UNK
     Dates: start: 20060901, end: 20070501
  3. NUVARING [Concomitant]
     Dosage: UNK
     Dates: start: 20061030, end: 20100121
  4. YAZ [Suspect]
     Indication: PAIN MANAGEMENT
  5. YASMIN [Suspect]
     Indication: PREMENSTRUAL SYNDROME
  6. YASMIN [Suspect]
     Indication: ACNE
     Dosage: UNK
     Route: 048
     Dates: start: 20060901, end: 20070501
  7. YAZ [Suspect]
     Indication: ACNE
     Dosage: UNK
     Route: 048
     Dates: start: 20060901, end: 20070501
  8. YAZ [Suspect]
     Indication: MENSTRUAL CYCLE MANAGEMENT
     Dosage: UNK
     Dates: start: 20060901, end: 20070501
  9. YAZ [Suspect]
     Indication: PREMENSTRUAL SYNDROME
  10. IBUPROFEN [Concomitant]

REACTIONS (5)
  - CHOLECYSTITIS CHRONIC [None]
  - ABDOMINAL PAIN UPPER [None]
  - ABDOMINAL PAIN [None]
  - FOOD INTOLERANCE [None]
  - CHOLELITHIASIS [None]
